FAERS Safety Report 9680112 (Version 1)
Quarter: 2013Q4

REPORT INFORMATION
  Report Type: Spontaneous
  Country: US (occurrence: US)
  Receive Date: 20131111
  Receipt Date: 20131111
  Transmission Date: 20140711
  Serious: Yes (Other)
  Sender: FDA-Public Use
  Company Number: US-BIOGENIDEC-2013BI107258

PATIENT
  Age: 56 Year
  Sex: Male

DRUGS (6)
  1. TECFIDERA [Suspect]
     Indication: MULTIPLE SCLEROSIS
     Route: 048
     Dates: start: 20131012, end: 20131019
  2. TECFIDERA [Suspect]
     Indication: MULTIPLE SCLEROSIS
     Route: 048
     Dates: start: 20131019, end: 20131024
  3. XANAX [Concomitant]
  4. BACLOFEN [Concomitant]
  5. DITROPAN [Concomitant]
  6. NORCO [Concomitant]

REACTIONS (5)
  - Haematemesis [Recovered/Resolved]
  - Diarrhoea haemorrhagic [Recovered/Resolved]
  - Weight decreased [Recovered/Resolved]
  - Multiple sclerosis relapse [Unknown]
  - Malaise [Unknown]
